FAERS Safety Report 12715438 (Version 1)
Quarter: 2016Q3

REPORT INFORMATION
  Report Type: Spontaneous
  Country: FR (occurrence: FR)
  Receive Date: 20160906
  Receipt Date: 20160906
  Transmission Date: 20161109
  Serious: Yes (Other)
  Sender: FDA-Public Use
  Company Number: FR-AMGEN-FRASP2016104744

PATIENT
  Age: 78 Year
  Sex: Male
  Weight: 70 kg

DRUGS (2)
  1. CORTANCYL [Suspect]
     Active Substance: PREDNISONE
     Indication: PENILE BLISTER
     Dosage: 70 MG, QD
     Route: 065
     Dates: start: 20160802
  2. XGEVA [Suspect]
     Active Substance: DENOSUMAB
     Indication: PRODUCT USED FOR UNKNOWN INDICATION
     Dosage: 120 MG, QMO
     Route: 065
     Dates: start: 20160613

REACTIONS (3)
  - Penile blister [Not Recovered/Not Resolved]
  - Hypernatraemia [Unknown]
  - Fluid retention [Unknown]

NARRATIVE: CASE EVENT DATE: 20160802
